FAERS Safety Report 6531839-4 (Version None)
Quarter: 2010Q1

REPORT INFORMATION
  Report Type: 
  Country: None (occurrence: None)
  Receive Date: 20100108
  Receipt Date: 20091229
  Transmission Date: 20100710
  Serious: Yes (Other)
  Sender: FDA-Public Use
  Company Number: IL-MEDIMMUNE-MEDI-0009954

PATIENT
  Sex: Male
  Weight: 6.3 kg

DRUGS (2)
  1. SYNAGIS [Suspect]
     Dates: start: 20091101, end: 20091101
  2. SYNAGIS [Suspect]
     Dates: start: 20091201, end: 20091201

REACTIONS (6)
  - DECREASED APPETITE [None]
  - HYPOACUSIS [None]
  - PYREXIA [None]
  - RESTLESSNESS [None]
  - SLEEP DISORDER [None]
  - VOMITING [None]
